FAERS Safety Report 17063554 (Version 1)
Quarter: 2019Q4

REPORT INFORMATION
  Report Type: Spontaneous
  Country: US (occurrence: US)
  Receive Date: 20191122
  Receipt Date: 20191122
  Transmission Date: 20200122
  Serious: No
  Sender: FDA-Public Use
  Company Number: US-SUNOVION-2019SUN004860

PATIENT
  Sex: Female

DRUGS (1)
  1. LATUDA [Suspect]
     Active Substance: LURASIDONE HYDROCHLORIDE
     Dosage: 60 MG, HS (1 TAB AT NIGHT)
     Route: 048

REACTIONS (3)
  - Insomnia [Unknown]
  - Somnolence [Recovered/Resolved]
  - Initial insomnia [Unknown]
